FAERS Safety Report 16108181 (Version 2)
Quarter: 2019Q2

REPORT INFORMATION
  Report Type: Spontaneous
  Country: US (occurrence: US)
  Receive Date: 20190322
  Receipt Date: 20190523
  Transmission Date: 20190711
  Serious: Yes (Hospitalization, Other)
  Sender: FDA-Public Use
  Company Number: US-BRISTOL-MYERS SQUIBB COMPANY-BMS-2019-026888

PATIENT
  Age: 72 Year
  Sex: Female

DRUGS (2)
  1. YERVOY [Suspect]
     Active Substance: IPILIMUMAB
     Indication: MALIGNANT MELANOMA
     Dosage: UNAVAILABLE
     Route: 065
  2. NIVOLUMAB [Suspect]
     Active Substance: NIVOLUMAB
     Indication: MALIGNANT MELANOMA
     Route: 065

REACTIONS (8)
  - Diarrhoea [Unknown]
  - Aphasia [Unknown]
  - Delirium [Unknown]
  - Myopathy [Unknown]
  - Mycobacterium chelonae infection [Unknown]
  - Malignant melanoma [Unknown]
  - Decubitus ulcer [Unknown]
  - Radiation necrosis [Unknown]

NARRATIVE: CASE EVENT DATE: 201708
